FAERS Safety Report 9293425 (Version 1)
Quarter: 2013Q2

REPORT INFORMATION
  Report Type: Report from Study
  Country: CA (occurrence: CA)
  Receive Date: 20130516
  Receipt Date: 20130516
  Transmission Date: 20140414
  Serious: Yes (Other)
  Sender: FDA-Public Use
  Company Number: CA-JNJFOC-20130506329

PATIENT
  Age: 65 Year
  Sex: Female
  Weight: 84 kg

DRUGS (14)
  1. REMICADE [Suspect]
     Indication: RHEUMATOID ARTHRITIS
     Route: 042
     Dates: start: 2003
  2. IMURAN [Concomitant]
     Route: 065
  3. METHOTREXATE [Concomitant]
     Route: 065
  4. GOLD [Concomitant]
     Route: 065
  5. BABY ASPIRIN [Concomitant]
     Route: 065
  6. CYCLOBENZAPRINE [Concomitant]
     Route: 065
  7. ATENOL [Concomitant]
     Route: 065
  8. PRAVACOL [Concomitant]
     Route: 065
  9. METFORMIN [Concomitant]
     Route: 065
  10. HYDROCHLOROTHIAZIDE [Concomitant]
     Route: 065
  11. CELEBREX [Concomitant]
     Route: 065
  12. NEXIUM [Concomitant]
     Route: 065
  13. GLYBURIDE [Concomitant]
     Route: 065
  14. LYRICA [Concomitant]
     Route: 065

REACTIONS (3)
  - Ankle operation [Recovering/Resolving]
  - Impaired healing [Recovering/Resolving]
  - Surgery [Unknown]
